FAERS Safety Report 4504535-2 (Version None)
Quarter: 2004Q4

REPORT INFORMATION
  Report Type: 
  Country: None (occurrence: None)
  Receive Date: 20041116
  Receipt Date: 20041105
  Transmission Date: 20050328
  Serious: Yes (Hospitalization)
  Sender: FDA-Public Use
  Company Number: BRO-007856

PATIENT
  Age: 71 Year
  Sex: Female

DRUGS (4)
  1. IOPAMIDOL-300 [Suspect]
     Indication: HAEMANGIOMA OF LIVER
     Dosage: 100 ML IV
     Route: 042
     Dates: start: 20041008, end: 20041008
  2. ADALAT CC [Concomitant]
  3. FAMOTIDINE [Concomitant]
  4. NELBON (NITRAZEPAM) [Concomitant]

REACTIONS (11)
  - ARTERIOSPASM CORONARY [None]
  - BLOOD PRESSURE DECREASED [None]
  - BRADYCARDIA [None]
  - CONTRAST MEDIA REACTION [None]
  - DEPRESSED LEVEL OF CONSCIOUSNESS [None]
  - ELECTROCARDIOGRAM ST SEGMENT ELEVATION [None]
  - FEELING ABNORMAL [None]
  - HYPERSENSITIVITY [None]
  - HYPOPNOEA [None]
  - NAUSEA [None]
  - STRIDOR [None]
